FAERS Safety Report 14309287 (Version 2)
Quarter: 2018Q4

REPORT INFORMATION
  Report Type: Spontaneous
  Country: CH (occurrence: CH)
  Receive Date: 20171220
  Receipt Date: 20181031
  Transmission Date: 20190204
  Serious: Yes (Other)
  Sender: FDA-Public Use
  Company Number: CH-OTSUKA-2017_027337

PATIENT
  Age: 62 Year
  Sex: Male

DRUGS (2)
  1. JINARC [Suspect]
     Active Substance: TOLVAPTAN
     Indication: CONGENITAL CYSTIC KIDNEY DISEASE
     Dosage: UNK (45), QD (IN MORNING)
     Route: 065
     Dates: start: 201706, end: 201707
  2. JINARC [Suspect]
     Active Substance: TOLVAPTAN
     Dosage: UNK (15), QD (IN EVENING)
     Route: 065
     Dates: start: 201706, end: 201707

REACTIONS (2)
  - Urge incontinence [Unknown]
  - Acute kidney injury [Recovered/Resolved]

NARRATIVE: CASE EVENT DATE: 2017
